FAERS Safety Report 10160264 (Version 2)
Quarter: 2014Q2

REPORT INFORMATION
  Report Type: Spontaneous
  Country: US (occurrence: US)
  Receive Date: 20140508
  Receipt Date: 20140627
  Transmission Date: 20141212
  Serious: Yes (Death, Other)
  Sender: FDA-Public Use
  Company Number: PHEH2014US009181

PATIENT
  Age: 79 Year
  Sex: Female
  Weight: 63 kg

DRUGS (20)
  1. MIACALCIN [Suspect]
     Indication: OSTEOPOROSIS
     Dosage: 1 SPRAY ALT NOSTRILS A DAY
     Route: 045
     Dates: start: 20030217, end: 20121002
  2. LIPITOR [Concomitant]
     Dosage: 10 MG, QD
     Route: 048
  3. ADVAIR [Concomitant]
     Dosage: METERED-DOSE INHALER
  4. SPIRIVA [Concomitant]
     Dosage: METERED-DOSE INHALER
  5. XOPENEX [Concomitant]
     Dosage: METERED-DOSE INHALER
  6. ALPRAZOLAM [Concomitant]
  7. ASPIRIN [Concomitant]
  8. ATORVASTATIN [Concomitant]
  9. CALCIUM CARBONATE [Concomitant]
  10. FENTANYL [Concomitant]
  11. FLUTICASONE W/SALMETEROL [Concomitant]
  12. HYDROCODONE/ACETAMINOPHEN          /00607101/ [Concomitant]
  13. LEVALBUTEROL [Concomitant]
  14. MIRTAZAPINE [Concomitant]
  15. MULTIVITAMIN                       /00097801/ [Concomitant]
  16. OMEPRAZOLE [Concomitant]
  17. POLYETHYLENE GLYCOL [Concomitant]
  18. SENNOSIDE [Concomitant]
  19. SODIUM CHLORIDE [Concomitant]
  20. TIOTROPIUM [Concomitant]

REACTIONS (11)
  - Malignant melanoma [Fatal]
  - Nasal obstruction [Fatal]
  - Metastatic malignant melanoma [Fatal]
  - Hip fracture [Unknown]
  - Arthralgia [Unknown]
  - Fatigue [Unknown]
  - Abasia [Unknown]
  - Hypersomnia [Unknown]
  - Decreased appetite [Unknown]
  - Pyrexia [Unknown]
  - Asthenia [Unknown]
